FAERS Safety Report 7270344-7 (Version None)
Quarter: 2011Q1

REPORT INFORMATION
  Report Type: 
  Country: None (occurrence: None)
  Receive Date: 20110202
  Receipt Date: 20110128
  Transmission Date: 20110831
  Serious: Yes (Other)
  Sender: FDA-Public Use
  Company Number: GB-ABBOTT-11P-167-0695426-00

PATIENT
  Sex: Female
  Weight: 69 kg

DRUGS (4)
  1. VITAMIN D [Concomitant]
     Indication: VITAMIN D DEFICIENCY
  2. KALETRA [Suspect]
     Indication: HIV TEST POSITIVE
     Route: 048
     Dates: start: 20101108, end: 20101124
  3. PROCHLORPERAZINE [Concomitant]
     Indication: NAUSEA
     Route: 048
     Dates: start: 20100927
  4. COMBIVIR [Concomitant]
     Indication: HIV INFECTION
     Route: 048
     Dates: start: 20101108

REACTIONS (2)
  - SYNCOPE [None]
  - PALPITATIONS [None]
